FAERS Safety Report 11874268 (Version 1)
Quarter: 2015Q4

REPORT INFORMATION
  Report Type: Report from Study
  Country: CN (occurrence: CN)
  Receive Date: 20151229
  Receipt Date: 20151229
  Transmission Date: 20160305
  Serious: Yes (Other)
  Sender: FDA-Public Use
  Company Number: CN-SUN PHARMACEUTICAL INDUSTRIES LTD-2015RR-108525

PATIENT

DRUGS (2)
  1. PREDNISONE. [Suspect]
     Active Substance: PREDNISONE
     Indication: MICROSCOPIC POLYANGIITIS
     Route: 048
  2. MYCOPHENOLATE MOFETIL. [Suspect]
     Active Substance: MYCOPHENOLATE MOFETIL
     Indication: MICROSCOPIC POLYANGIITIS
     Dosage: 1.5 G, DAILY
     Route: 065

REACTIONS (2)
  - Lymphopenia [Recovering/Resolving]
  - Pneumocystis jirovecii pneumonia [Recovering/Resolving]
